FAERS Safety Report 5287110-4 (Version None)
Quarter: 2007Q2

REPORT INFORMATION
  Report Type: 
  Country: None (occurrence: None)
  Receive Date: 20070404
  Receipt Date: 20070327
  Transmission Date: 20071010
  Serious: Yes (Hospitalization)
  Sender: FDA-Public Use
  Company Number: JP-PFIZER INC-2007003484

PATIENT
  Sex: Male
  Weight: 58 kg

DRUGS (7)
  1. CARDENALIN [Suspect]
     Route: 048
     Dates: start: 20011101, end: 20070130
  2. AMLODIN [Suspect]
     Indication: HYPERTENSION
     Route: 048
     Dates: start: 20030101, end: 20070110
  3. THEO-DUR [Suspect]
     Indication: ASTHMA
     Dosage: DAILY DOSE:100MG
     Route: 048
     Dates: start: 20050210, end: 20070111
  4. ONON [Suspect]
     Indication: ASTHMA
     Dosage: DAILY DOSE:450MG
     Route: 048
  5. ALLOPURINOL [Concomitant]
     Route: 048
  6. POTASSIUM CITRATE/SODIUM CITRATE [Concomitant]
     Route: 048
  7. SARALIN [Concomitant]
     Route: 048

REACTIONS (2)
  - ARTHRITIS [None]
  - MUSCULAR WEAKNESS [None]
